FAERS Safety Report 17527196 (Version 11)
Quarter: 2020Q2

REPORT INFORMATION
  Report Type: Report from Study
  Country: None (occurrence: ES)
  Receive Date: 20200310
  Receipt Date: 20200509
  Transmission Date: 20200713
  Serious: Yes (Other)
  Sender: FDA-Public Use
  Company Number: ES-ABBVIE-20K-144-3302727-00

PATIENT
  Age: 49 Year
  Sex: Male
  Weight: 67 kg

DRUGS (6)
  1. DUODOPA [Suspect]
     Active Substance: CARBIDOPA\LEVODOPA
     Dosage: LOWER THE CONTINUOUS DOSE BY 0.4 ML / H (DAY/NIGHT), EXTRA DOSE BY 0.5 ML
     Route: 050
     Dates: start: 20200306, end: 20200312
  2. XADAGO [Concomitant]
     Active Substance: SAFINAMIDE MESYLATE
     Indication: PRODUCT USED FOR UNKNOWN INDICATION
     Dates: end: 2020
  3. DUODOPA [Suspect]
     Active Substance: CARBIDOPA\LEVODOPA
     Indication: PARKINSON^S DISEASE
     Route: 050
     Dates: start: 20170512, end: 20200306
  4. DUODOPA [Suspect]
     Active Substance: CARBIDOPA\LEVODOPA
     Dosage: DECREASE OF CONTINUOUS, DECREASE EXTRA DOSE
     Route: 050
     Dates: start: 20200319
  5. DUODOPA [Suspect]
     Active Substance: CARBIDOPA\LEVODOPA
     Dosage: DOSE CHANGE
     Route: 050
     Dates: start: 20200312, end: 20200319
  6. BRINTELLIX [Concomitant]
     Active Substance: VORTIOXETINE HYDROBROMIDE
     Indication: PRODUCT USED FOR UNKNOWN INDICATION
     Dates: end: 2020

REACTIONS (18)
  - Personality change [Not Recovered/Not Resolved]
  - Depressed mood [Recovered/Resolved]
  - Anger [Recovered/Resolved]
  - Sleep disorder [Unknown]
  - Behaviour disorder [Recovered/Resolved]
  - Obsessive-compulsive disorder [Recovered/Resolved]
  - Abnormal behaviour [Unknown]
  - Tremor [Recovering/Resolving]
  - Obsessive-compulsive disorder [Recovered/Resolved]
  - Nervousness [Not Recovered/Not Resolved]
  - Hypersexuality [Recovering/Resolving]
  - Mental disorder [Unknown]
  - Weight increased [Not Recovered/Not Resolved]
  - Obsessive-compulsive personality disorder [Not Recovered/Not Resolved]
  - Aggression [Recovered/Resolved]
  - Malaise [Unknown]
  - Aggression [Recovered/Resolved]
  - Hyperphagia [Unknown]

NARRATIVE: CASE EVENT DATE: 2020
